FAERS Safety Report 9700205 (Version 2)
Quarter: 2014Q1

REPORT INFORMATION
  Report Type: Spontaneous
  Country: ES (occurrence: None)
  Receive Date: 20131119
  Receipt Date: 20140131
  Transmission Date: 20141002
  Serious: Yes (Congenital Anomaly)
  Sender: FDA-Public Use
  Company Number: 2013P1020890

PATIENT
  Sex: Male

DRUGS (1)
  1. VALPROATE SODIUM [Suspect]
     Indication: EPILEPSY
     Route: 064

REACTIONS (3)
  - Maternal drugs affecting foetus [None]
  - Microtia [None]
  - Foetal anticonvulsant syndrome [None]
